FAERS Safety Report 10226481 (Version 1)
Quarter: 2014Q2

REPORT INFORMATION
  Report Type: Spontaneous
  Country: US (occurrence: US)
  Receive Date: 20140609
  Receipt Date: 20140609
  Transmission Date: 20141212
  Serious: No
  Sender: FDA-Public Use
  Company Number: US-AMGEN INC.-USASP2014010303

PATIENT
  Age: 74 Year
  Sex: Male
  Weight: 92.52 kg

DRUGS (1)
  1. PROCRIT [Suspect]
     Indication: PRODUCT USED FOR UNKNOWN INDICATION
     Dosage: 40,000 UNITS WEEKLY
     Route: 058
     Dates: start: 20140130

REACTIONS (1)
  - Headache [Unknown]
